FAERS Safety Report 7422003-5 (Version None)
Quarter: 2011Q2

REPORT INFORMATION
  Report Type: 
  Country: None (occurrence: None)
  Receive Date: 20110418
  Receipt Date: 20110412
  Transmission Date: 20111010
  Serious: Yes (Death)
  Sender: FDA-Public Use
  Company Number: CO-PFIZER INC-2011080838

PATIENT
  Age: 82 Year
  Sex: Male

DRUGS (5)
  1. ASPIRIN [Concomitant]
     Dosage: 100 MG, 1X/DAY
  2. METOPROLOL [Concomitant]
     Dosage: 100 MG, 1X/DAY
  3. LIPITOR [Suspect]
     Indication: DYSLIPIDAEMIA
     Dosage: 10 MG, 1X/DAY
     Dates: start: 20050301
  4. FUROSEMIDE [Concomitant]
     Dosage: 40 MG, 1X/DAY
  5. OLMETEC [Suspect]
     Indication: HYPERTENSION
     Dosage: OLMESARTAN 20 MG/HYDROCHLOROTHIAZIDE 12.5 MG
     Dates: start: 20050301

REACTIONS (1)
  - DEATH [None]
